FAERS Safety Report 21960691 (Version 1)
Quarter: 2023Q1

REPORT INFORMATION
  Report Type: Spontaneous
  Country: LT (occurrence: LT)
  Receive Date: 20230207
  Receipt Date: 20230207
  Transmission Date: 20230418
  Serious: Yes (Other)
  Sender: FDA-Public Use
  Company Number: LT-BRISTOL-MYERS SQUIBB COMPANY-2023-016005

PATIENT
  Age: 20 Year
  Sex: Female

DRUGS (3)
  1. LENALIDOMIDE [Suspect]
     Active Substance: LENALIDOMIDE
     Indication: T-cell lymphoma stage IV
  2. THALIDOMIDE [Suspect]
     Active Substance: THALIDOMIDE
     Indication: T-cell lymphoma stage IV
  3. LYMPHOCYTES [Suspect]
     Active Substance: LYMPHOCYTES
     Indication: T-cell lymphoma stage IV

REACTIONS (2)
  - Graft versus host disease in liver [Unknown]
  - Graft versus host disease in gastrointestinal tract [Unknown]
